FAERS Safety Report 20326797 (Version 2)
Quarter: 2022Q1

REPORT INFORMATION
  Report Type: Report from Study
  Country: US (occurrence: US)
  Receive Date: 20220112
  Receipt Date: 20220129
  Transmission Date: 20220424
  Serious: Yes (Other)
  Sender: FDA-Public Use
  Company Number: US-SANOFI-00925419

PATIENT
  Age: 49 Year
  Sex: Female

DRUGS (3)
  1. DUPILUMAB [Suspect]
     Active Substance: DUPILUMAB
     Indication: Dermatitis atopic
     Dosage: 600 MG, 1X
     Route: 058
     Dates: start: 20210519, end: 20210519
  2. DUPILUMAB [Suspect]
     Active Substance: DUPILUMAB
     Dosage: 300 MG, QOW
     Route: 058
  3. CIPROFLOXACIN [Concomitant]
     Active Substance: CIPROFLOXACIN

REACTIONS (6)
  - Intestinal prolapse [Unknown]
  - Infection [Unknown]
  - Anorectal disorder [Unknown]
  - Hysterectomy [Recovered/Resolved]
  - Hernia repair [Recovered/Resolved]
  - Bladder operation [Recovered/Resolved]

NARRATIVE: CASE EVENT DATE: 20210601
